FAERS Safety Report 9978943 (Version 1)
Quarter: 2014Q1

REPORT INFORMATION
  Report Type: Report from Study
  Country: US (occurrence: US)
  Receive Date: 20140306
  Receipt Date: 20140306
  Transmission Date: 20141002
  Serious: No
  Sender: FDA-Public Use
  Company Number: US-ABBVIE-13P-163-1170005-00

PATIENT
  Age: 56 Year
  Sex: Male

DRUGS (8)
  1. HUMIRA [Suspect]
     Indication: CROHN^S DISEASE
     Dates: start: 20121024
  2. PROBIOTICS [Suspect]
     Indication: ROUTINE HEALTH MAINTENANCE
     Dates: start: 201302
  3. SYNTHYROID [Concomitant]
     Indication: PRODUCT USED FOR UNKNOWN INDICATION
     Route: 048
  4. DOXAZOSIN [Concomitant]
     Indication: PROSTATOMEGALY
     Route: 048
  5. CELEXA [Concomitant]
     Indication: DEPRESSION
     Route: 048
  6. BENTYL [Concomitant]
     Indication: IRRITABLE BOWEL SYNDROME
  7. CENTRUM SILVER [Concomitant]
     Indication: VITAMIN SUPPLEMENTATION
     Route: 048
  8. SIMETHICONE [Concomitant]
     Indication: FLATULENCE

REACTIONS (14)
  - Carpal tunnel syndrome [Not Recovered/Not Resolved]
  - Retinopathy hypertensive [Not Recovered/Not Resolved]
  - Paraesthesia [Not Recovered/Not Resolved]
  - Erythema [Not Recovered/Not Resolved]
  - Pruritus [Not Recovered/Not Resolved]
  - Vision blurred [Not Recovered/Not Resolved]
  - Hypoaesthesia [Recovering/Resolving]
  - Pain in extremity [Not Recovered/Not Resolved]
  - Visual impairment [Not Recovered/Not Resolved]
  - Vascular occlusion [Not Recovered/Not Resolved]
  - Systemic lupus erythematosus [Not Recovered/Not Resolved]
  - Weight increased [Not Recovered/Not Resolved]
  - Bursa disorder [Not Recovered/Not Resolved]
  - Hypertension [Not Recovered/Not Resolved]
